FAERS Safety Report 5373067-4 (Version None)
Quarter: 2007Q2

REPORT INFORMATION
  Report Type: 
  Country: None (occurrence: None)
  Receive Date: 20070626
  Receipt Date: 20070614
  Transmission Date: 20071010
  Serious: Yes (Hospitalization)
  Sender: FDA-Public Use
  Company Number: 233659K07USA

PATIENT
  Age: 31 Year
  Sex: Male
  Weight: 136.0791 kg

DRUGS (3)
  1. REBIF [Suspect]
     Indication: MULTIPLE SCLEROSIS
     Dosage: 44 MCG, 3 IN 1 WEEKS, SUBCUTANEOUS
     Route: 058
     Dates: start: 20070301
  2. COUMADIN [Concomitant]
  3. DIOVAN [Concomitant]

REACTIONS (3)
  - HEADACHE [None]
  - MULTIPLE SCLEROSIS [None]
  - PERICARDIAL EFFUSION [None]
